FAERS Safety Report 10271686 (Version 2)
Quarter: 2018Q3

REPORT INFORMATION
  Report Type: Report from Study
  Country: US (occurrence: US)
  Receive Date: 20140701
  Receipt Date: 20180815
  Transmission Date: 20181010
  Serious: No
  Sender: FDA-Public Use
  Company Number: US-SA-2013SA124051

PATIENT
  Age: 59 Year
  Sex: Female

DRUGS (1)
  1. IMIGLUCERASE [Suspect]
     Active Substance: IMIGLUCERASE
     Indication: GAUCHER^S DISEASE
     Dosage: 3200; Q2
     Route: 041
     Dates: start: 20150826, end: 20180805

REACTIONS (2)
  - Nasopharyngitis [Not Recovered/Not Resolved]
  - Parkinson^s disease [Not Recovered/Not Resolved]
